FAERS Safety Report 15313869 (Version 1)
Quarter: 2018Q3

REPORT INFORMATION
  Report Type: Spontaneous
  Country: CO (occurrence: CO)
  Receive Date: 20180824
  Receipt Date: 20180824
  Transmission Date: 20181010
  Serious: Yes (Hospitalization, Other)
  Sender: FDA-Public Use
  Company Number: CO-ASTELLAS-2018US037160

PATIENT
  Age: 54 Year
  Sex: Male

DRUGS (2)
  1. PREDNISOLONE. [Suspect]
     Active Substance: PREDNISOLONE
     Indication: LIVER TRANSPLANT
     Dosage: UNK UNK, UNKNOWN FREQ.
     Route: 065
  2. TACROLIMUS. [Suspect]
     Active Substance: TACROLIMUS
     Indication: LIVER TRANSPLANT
     Dosage: UNK UNK, UNKNOWN FREQ.
     Route: 065

REACTIONS (8)
  - Acinetobacter bacteraemia [Unknown]
  - Bile duct obstruction [Unknown]
  - Hepatic artery thrombosis [Unknown]
  - Aspergillus infection [Unknown]
  - Vascular pseudoaneurysm [Unknown]
  - Liver transplant rejection [Recovered/Resolved]
  - Transaminases increased [Recovering/Resolving]
  - Pneumonia klebsiella [Unknown]
